FAERS Safety Report 7549446-3 (Version None)
Quarter: 2011Q2

REPORT INFORMATION
  Report Type: 
  Country: None (occurrence: None)
  Receive Date: 20110615
  Receipt Date: 20051220
  Transmission Date: 20111010
  Serious: Yes (Hospitalization, Other)
  Sender: FDA-Public Use
  Company Number: PHFR2005IE04133

PATIENT
  Sex: Male

DRUGS (1)
  1. CLOZARIL [Suspect]
     Indication: SCHIZOPHRENIA
     Dosage: 600 MG, QD
     Route: 048
     Dates: start: 20030714

REACTIONS (5)
  - CEREBRAL ATROPHY [None]
  - FALL [None]
  - CONVULSION [None]
  - FOAMING AT MOUTH [None]
  - LOSS OF CONSCIOUSNESS [None]
